FAERS Safety Report 25821714 (Version 1)
Quarter: 2025Q3

REPORT INFORMATION
  Report Type: Spontaneous
  Country: US (occurrence: US)
  Receive Date: 20250919
  Receipt Date: 20250919
  Transmission Date: 20251021
  Serious: Yes (Other)
  Sender: JOHNSON AND JOHNSON
  Company Number: US-JNJFOC-20250910658

PATIENT

DRUGS (1)
  1. TALVEY [Suspect]
     Active Substance: TALQUETAMAB-TGVS
     Indication: Product used for unknown indication
     Route: 065

REACTIONS (7)
  - Arrhythmia [Unknown]
  - Fatigue [Unknown]
  - Dyspnoea exertional [Unknown]
  - Alopecia [Unknown]
  - Skin exfoliation [Unknown]
  - Rash [Unknown]
  - Dandruff [Unknown]
